FAERS Safety Report 7271585-5 (Version None)
Quarter: 2011Q1

REPORT INFORMATION
  Report Type: 
  Country: None (occurrence: None)
  Receive Date: 20110125
  Receipt Date: 20110125
  Transmission Date: 20110831
  Serious: Yes (Other)
  Sender: FDA-Public Use
  Company Number: None

PATIENT
  Age: 3 Year
  Sex: Female
  Weight: 15.8759 kg

DRUGS (1)
  1. OVIDE [Suspect]
     Indication: LICE INFESTATION
     Dosage: 1 BOTTLE 8-12 HOURS CONSIST
     Dates: start: 20110121, end: 20110121

REACTIONS (3)
  - SKIN EXFOLIATION [None]
  - PAIN [None]
  - THERMAL BURN [None]
